FAERS Safety Report 5292419-4 (Version None)
Quarter: 2007Q2

REPORT INFORMATION
  Report Type: 
  Country: None (occurrence: None)
  Receive Date: 20070410
  Receipt Date: 20070403
  Transmission Date: 20071010
  Serious: Yes (Other)
  Sender: FDA-Public Use
  Company Number: US-PFIZER INC-2006098371

PATIENT
  Sex: Female
  Weight: 2.7 kg

DRUGS (2)
  1. VIRACEPT [Suspect]
     Indication: HIV INFECTION
     Dosage: DAILY DOSE:2500MG-FREQ:DAILY
     Route: 048
  2. COMBIVIR [Suspect]
     Indication: HIV INFECTION
     Dosage: TEXT:2 TABLETS-FREQ:DAILY
     Route: 048

REACTIONS (2)
  - CONGENITAL ADRENAL GLAND HYPOPLASIA [None]
  - EBSTEIN'S ANOMALY [None]
